FAERS Safety Report 8760665 (Version 1)
Quarter: 2012Q4

REPORT INFORMATION
  Report Type: 
  Country: FR (occurrence: FR)
  Receive Date: 20120830
  Receipt Date: 20120830
  Transmission Date: 20130627
  Serious: Yes (Hospitalization)
  Sender: FDA-Public Use
  Company Number: FR-SANOFI-AVENTIS-2012SA060367

PATIENT
  Age: 80 Year
  Sex: Female

DRUGS (6)
  1. PLAQUENIL [Suspect]
     Indication: RHEUMATOID ARTHRITIS
     Route: 048
     Dates: end: 201208
  2. PLAVIX [Concomitant]
     Route: 048
  3. ZANIDIP [Concomitant]
     Route: 048
  4. SOTALOL [Concomitant]
     Route: 048
  5. ATARAX [Concomitant]
     Route: 048
  6. EFFEXOR [Concomitant]
     Route: 048

REACTIONS (3)
  - Inflammation [Recovering/Resolving]
  - Cholestasis [Recovering/Resolving]
  - Hepatocellular injury [Recovering/Resolving]
